FAERS Safety Report 11079743 (Version 1)
Quarter: 2015Q2

REPORT INFORMATION
  Report Type: Report from Study
  Country: GB (occurrence: GB)
  Receive Date: 20150430
  Receipt Date: 20150430
  Transmission Date: 20150821
  Serious: Yes (Hospitalization)
  Sender: FDA-Public Use
  Company Number: GB-ASTRAZENECA-2015SE38641

PATIENT
  Age: 31862 Day

DRUGS (2)
  1. RADIATION THERAPY [Suspect]
     Active Substance: RADIATION THERAPY
     Indication: OESOPHAGEAL CARCINOMA
     Route: 065
  2. AZD2281 [Suspect]
     Active Substance: OLAPARIB
     Indication: OESOPHAGEAL CARCINOMA
     Route: 048
     Dates: start: 20131122, end: 20131228

REACTIONS (1)
  - Dysphagia [Recovered/Resolved]

NARRATIVE: CASE EVENT DATE: 20140102
